FAERS Safety Report 11923559 (Version 2)
Quarter: 2016Q3

REPORT INFORMATION
  Report Type: Report from Study
  Country: DE (occurrence: DE)
  Receive Date: 20160118
  Receipt Date: 20160805
  Transmission Date: 20161109
  Serious: Yes (Hospitalization)
  Sender: FDA-Public Use
  Company Number: DE-ROCHE-1695751

PATIENT
  Age: 81 Year
  Sex: Female

DRUGS (5)
  1. TOCILIZUMAB [Suspect]
     Active Substance: TOCILIZUMAB
     Dosage: SAME DOSE ON 24/MAY/2013, 21/OCT/2013, 11/JUN/2014, 08/JAN/2015, 11/MAY/2015 AND 05/JAN/2016
     Route: 042
     Dates: start: 20121011
  2. TOCILIZUMAB [Suspect]
     Active Substance: TOCILIZUMAB
     Route: 042
     Dates: start: 20110412
  3. TOCILIZUMAB [Suspect]
     Active Substance: TOCILIZUMAB
     Route: 042
     Dates: start: 20120425
  4. TOCILIZUMAB [Suspect]
     Active Substance: TOCILIZUMAB
     Route: 042
     Dates: start: 20111012
  5. TOCILIZUMAB [Suspect]
     Active Substance: TOCILIZUMAB
     Indication: RHEUMATOID ARTHRITIS
     Route: 042
     Dates: start: 201011

REACTIONS (3)
  - Polyneuropathy [Recovered/Resolved]
  - Trigeminal neuralgia [Unknown]
  - Parotid gland enlargement [Unknown]

NARRATIVE: CASE EVENT DATE: 20151006
